FAERS Safety Report 8475102 (Version 6)
Quarter: 2014Q2

REPORT INFORMATION
  Report Type: Spontaneous
  Country: US (occurrence: US)
  Receive Date: 20120323
  Receipt Date: 20140415
  Transmission Date: 20141212
  Serious: Yes (Hospitalization, Other)
  Sender: FDA-Public Use
  Company Number: US-MERCK-1203USA02681

PATIENT
  Sex: Female
  Weight: 48.53 kg

DRUGS (5)
  1. FOSAMAX [Suspect]
     Indication: BONE LOSS
     Dosage: 70 MG, QW
     Route: 048
     Dates: end: 201005
  2. FOSAMAX [Suspect]
     Indication: OSTEOPOROSIS
     Dosage: 10 MG, QD
     Route: 048
     Dates: start: 1996
  3. FOSAMAX [Suspect]
     Dosage: 70 MG, UNK
     Route: 048
  4. CALCIUM (UNSPECIFIED) [Concomitant]
     Indication: OSTEOPOROSIS
  5. VITAMIN D (UNSPECIFIED) [Concomitant]
     Indication: OSTEOPOROSIS

REACTIONS (29)
  - Femur fracture [Recovering/Resolving]
  - Intramedullary rod insertion [Recovering/Resolving]
  - Intramedullary rod insertion [Recovered/Resolved]
  - Tibia fracture [Unknown]
  - Nephrolithiasis [Unknown]
  - Adverse event [Unknown]
  - Surgery [Unknown]
  - Femur fracture [Recovered/Resolved]
  - Fall [Unknown]
  - Fall [Unknown]
  - Foot fracture [Unknown]
  - Haemorrhagic anaemia [Unknown]
  - Haemorrhagic anaemia [Unknown]
  - Spinal osteoarthritis [Unknown]
  - Chest discomfort [Unknown]
  - Nephrolithiasis [Unknown]
  - Productive cough [Unknown]
  - Lumbar spinal stenosis [Unknown]
  - Vitamin D decreased [Unknown]
  - Herpes zoster [Unknown]
  - Hypothyroidism [Unknown]
  - Hypercholesterolaemia [Unknown]
  - Nerve compression [Unknown]
  - Osteopenia [Unknown]
  - Adverse event [Unknown]
  - Paraesthesia [Unknown]
  - Nausea [Unknown]
  - Arthralgia [Unknown]
  - Headache [Unknown]
